FAERS Safety Report 18769156 (Version 3)
Quarter: 2021Q1

REPORT INFORMATION
  Report Type: Spontaneous
  Country: US (occurrence: US)
  Receive Date: 20210121
  Receipt Date: 20210331
  Transmission Date: 20210419
  Serious: No
  Sender: FDA-Public Use
  Company Number: US-PFIZER INC-2021034449

PATIENT
  Age: 82 Year
  Sex: Male

DRUGS (3)
  1. XELJANZ [Suspect]
     Active Substance: TOFACITINIB CITRATE
     Dosage: 5 MG, 1X/DAY
  2. XELJANZ [Suspect]
     Active Substance: TOFACITINIB CITRATE
     Indication: COLITIS ULCERATIVE
     Dosage: 10 MG, 2X/DAY (10MG IN THE MORNING AND EVENING)
  3. XELJANZ [Suspect]
     Active Substance: TOFACITINIB CITRATE
     Dosage: 5 MG, 2X/DAY
     Route: 048
     Dates: start: 202101

REACTIONS (10)
  - Feeling abnormal [Unknown]
  - Rash [Unknown]
  - Intentional dose omission [Unknown]
  - Visual impairment [Unknown]
  - Condition aggravated [Unknown]
  - Skin discolouration [Unknown]
  - Dyspnoea [Recovering/Resolving]
  - Intentional product misuse [Unknown]
  - Fatigue [Unknown]
  - Malaise [Unknown]

NARRATIVE: CASE EVENT DATE: 2021
